FAERS Safety Report 8208740-3 (Version None)
Quarter: 2012Q1

REPORT INFORMATION
  Report Type: 
  Country: None (occurrence: None)
  Receive Date: 20120314
  Receipt Date: 20120309
  Transmission Date: 20120608
  Serious: Yes (Hospitalization, Other)
  Sender: FDA-Public Use
  Company Number: US-BAYER-200937031NA

PATIENT
  Age: 39 Year
  Sex: Female
  Weight: 49 kg

DRUGS (3)
  1. ACCUTANE [Concomitant]
     Indication: ACNE
     Dosage: 40 MG, UNK
     Route: 048
     Dates: start: 20030609, end: 20040414
  2. YASMIN [Suspect]
     Indication: CONTRACEPTION
     Route: 048
  3. YASMIN [Suspect]
     Indication: ENDOMETRIOSIS

REACTIONS (4)
  - PULMONARY EMBOLISM [None]
  - PAIN [None]
  - DEEP VEIN THROMBOSIS [None]
  - THROMBOSIS [None]
